FAERS Safety Report 9720156 (Version 1)
Quarter: 2013Q4

REPORT INFORMATION
  Report Type: Report from Study
  Country: US (occurrence: US)
  Receive Date: 20131129
  Receipt Date: 20131129
  Transmission Date: 20140711
  Serious: Yes (Death)
  Sender: FDA-Public Use
  Company Number: US-ROCHE-1311671

PATIENT
  Sex: Female

DRUGS (4)
  1. AVASTIN [Suspect]
     Indication: BRAIN NEOPLASM MALIGNANT
     Route: 042
     Dates: start: 20110824
  2. CARBOPLATIN [Concomitant]
     Route: 042
  3. DECADRON [Concomitant]
     Route: 042
  4. ZOFRAN [Concomitant]
     Route: 065

REACTIONS (1)
  - Disease progression [Fatal]
